FAERS Safety Report 8192677-2 (Version None)
Quarter: 2012Q1

REPORT INFORMATION
  Report Type: 
  Country: None (occurrence: None)
  Receive Date: 20120221
  Receipt Date: 20111109
  Transmission Date: 20120608
  Serious: No
  Sender: FDA-Public Use
  Company Number: 1000025349

PATIENT
  Sex: Female

DRUGS (2)
  1. VIIBRYD [Suspect]
     Dosage: 5 MG (5 MG, 1 IN 1 D); 10 MG (10 MG, 1 IN 1 D)
  2. VIIBRYD [Suspect]
     Dosage: 5 MG (5 MG, 1 IN 1 D); 10 MG (10 MG, 1 IN 1 D)

REACTIONS (5)
  - ABDOMINAL DISTENSION [None]
  - INCREASED APPETITE [None]
  - FEELING ABNORMAL [None]
  - DIARRHOEA [None]
  - FLATULENCE [None]
